FAERS Safety Report 15938921 (Version 1)
Quarter: 2019Q1

REPORT INFORMATION
  Report Type: Spontaneous
  Country: US (occurrence: US)
  Receive Date: 20190208
  Receipt Date: 20190208
  Transmission Date: 20190417
  Serious: No
  Sender: FDA-Public Use
  Company Number: US-PFIZER INC-2019054366

PATIENT
  Age: 64 Year
  Sex: Female

DRUGS (4)
  1. SOMAVERT [Suspect]
     Active Substance: PEGVISOMANT
     Dosage: UNK
     Dates: start: 2004, end: 2008
  2. SOMAVERT [Suspect]
     Active Substance: PEGVISOMANT
     Dosage: UNK
     Dates: start: 2010
  3. SOMAVERT [Suspect]
     Active Substance: PEGVISOMANT
     Dosage: 20 MG, 4 DAYS A WEEK
     Dates: start: 2008
  4. SOMAVERT [Suspect]
     Active Substance: PEGVISOMANT
     Dosage: 20 MG, DAILY
     Dates: start: 2011

REACTIONS (1)
  - Treatment noncompliance [Unknown]
